FAERS Safety Report 6406254-4 (Version None)
Quarter: 2009Q4

REPORT INFORMATION
  Report Type: 
  Country: None (occurrence: None)
  Receive Date: 20091019
  Receipt Date: 20091008
  Transmission Date: 20100525
  Serious: Yes (Other)
  Sender: FDA-Public Use
  Company Number: PHHY2009FR43943

PATIENT
  Sex: Female

DRUGS (2)
  1. GLEEVEC [Suspect]
     Indication: CHRONIC MYELOID LEUKAEMIA
     Dosage: 600 MG/DAY
     Route: 048
     Dates: start: 20010901, end: 20080801
  2. GLEEVEC [Suspect]
     Dosage: 400 MG/DAY
     Dates: start: 20080901

REACTIONS (2)
  - HYPERTHYROIDISM [None]
  - TOXIC NODULAR GOITRE [None]
